FAERS Safety Report 4963177-5 (Version None)
Quarter: 2006Q2

REPORT INFORMATION
  Report Type: 
  Country: None (occurrence: None)
  Receive Date: 20060405
  Receipt Date: 20060324
  Transmission Date: 20061013
  Serious: Yes (Hospitalization, Other)
  Sender: FDA-Public Use
  Company Number: US-MERCK-0603USA04332

PATIENT
  Age: 73 Year
  Sex: Male
  Weight: 76 kg

DRUGS (4)
  1. VIOXX [Suspect]
     Indication: RHEUMATOID ARTHRITIS
     Route: 048
     Dates: start: 20010716, end: 20040501
  2. ALEVE [Concomitant]
     Indication: ARTHRITIS
     Route: 065
  3. ASPIRIN [Concomitant]
     Indication: CEREBROVASCULAR ACCIDENT PROPHYLAXIS
     Route: 065
  4. VIAGRA [Concomitant]
     Indication: ERECTILE DYSFUNCTION
     Route: 065

REACTIONS (5)
  - ARTHROPATHY [None]
  - BLOOD CHOLESTEROL INCREASED [None]
  - HYPERTENSION [None]
  - MYOCARDIAL INFARCTION [None]
  - TRANSIENT ISCHAEMIC ATTACK [None]
